FAERS Safety Report 8988816 (Version 2)
Quarter: 2013Q1

REPORT INFORMATION
  Report Type: Spontaneous
  Country: US (occurrence: None)
  Receive Date: 20121218
  Receipt Date: 20121226
  Transmission Date: 20140127
  Serious: Yes (Hospitalization)
  Sender: FDA-Public Use
  Company Number: DKLU1087156

PATIENT
  Age: 21 Month
  Sex: Male

DRUGS (8)
  1. SABRIL (FOR ORAL SOLUTION) (SABRIL) (VIGABATRIN) (500 MG, POWDER FOR ORAL SOLUTION) [Suspect]
     Indication: INFANTILE SPASMS
     Route: 048
  2. ONFI [Concomitant]
  3. TOPAMAX (TOPIRAMATE) [Concomitant]
  4. ALBUTEROL (SALBUTAMOL) [Concomitant]
  5. PULMICORT (BUDESONIDE) [Concomitant]
  6. MIRALAX [Concomitant]
  7. NEXIUM (ESOMEPRAZOLE MAGNESIUM) [Concomitant]
  8. ROBINUL (GLYCOPYRRONIUM BROMIDE) [Concomitant]

REACTIONS (4)
  - Lung infection [None]
  - Aspiration [None]
  - Pyrexia [None]
  - Pneumonia [None]
